FAERS Safety Report 22206231 (Version 1)
Quarter: 2023Q2

REPORT INFORMATION
  Report Type: Spontaneous
  Country: US (occurrence: None)
  Receive Date: 20230412
  Receipt Date: 20230412
  Transmission Date: 20230721
  Serious: Yes (Other)
  Sender: FDA-Public Use
  Company Number: None

PATIENT
  Age: 72 Year
  Sex: Female
  Weight: 57.6 kg

DRUGS (13)
  1. NEURONTIN [Suspect]
     Active Substance: GABAPENTIN
     Indication: Pain
     Dosage: FREQUENCY : 3 TIMES A DAY;?
     Dates: start: 20230315, end: 20230318
  2. METFORMIN [Concomitant]
     Active Substance: METFORMIN HYDROCHLORIDE
  3. JANUVIA [Concomitant]
     Active Substance: SITAGLIPTIN PHOSPHATE
  4. BENAZEPRIL [Concomitant]
     Active Substance: BENAZEPRIL HYDROCHLORIDE
  5. ROSUVASTATIN [Concomitant]
     Active Substance: ROSUVASTATIN
  6. Ezetimibe CPAP [Concomitant]
  7. Senior multi-vitamin [Concomitant]
  8. CALCIUM [Concomitant]
     Active Substance: CALCIUM
  9. FISH OIL [Concomitant]
     Active Substance: FISH OIL
  10. MAGNESIUM [Concomitant]
     Active Substance: MAGNESIUM
  11. IRON [Concomitant]
     Active Substance: IRON
  12. VITAMIN C [Concomitant]
     Active Substance: ASCORBIC ACID
  13. Hair-skin-nails [Concomitant]

REACTIONS (3)
  - Brain fog [None]
  - Memory impairment [None]
  - Aphasia [None]

NARRATIVE: CASE EVENT DATE: 20230319
